FAERS Safety Report 4288983-4 (Version None)
Quarter: 2004Q1

REPORT INFORMATION
  Report Type: 
  Country: None (occurrence: None)
  Receive Date: 20040205
  Receipt Date: 20030911
  Transmission Date: 20041129
  Serious: Yes (Hospitalization)
  Sender: FDA-Public Use
  Company Number: ETHYOL-02548

PATIENT
  Age: 75 Year
  Sex: Male
  Weight: 102.0593 kg

DRUGS (4)
  1. ETHYOL [Suspect]
     Dosage: 500 MG, 1 IN 1 D, SUBCUTANEOUS
     Route: 058
     Dates: start: 20030822, end: 20030908
  2. DECADRON [Concomitant]
  3. ZOFRON (ONDANSETRON HYDROCHLORIDE) [Concomitant]
  4. COMPAZINE (PROCHLOPERAZINE EDISYLATE) [Concomitant]

REACTIONS (2)
  - MEDICATION ERROR [None]
  - PYREXIA [None]
